FAERS Safety Report 4548273-9 (Version None)
Quarter: 2005Q1

REPORT INFORMATION
  Report Type: 
  Country: None (occurrence: None)
  Receive Date: 20050110
  Receipt Date: 20041115
  Transmission Date: 20050727
  Serious: Yes (Death)
  Sender: FDA-Public Use
  Company Number: US-ABBOTT-04P-163-0280662-00

PATIENT
  Sex: Male
  Weight: 104.5 kg

DRUGS (2)
  1. VICODIN [Suspect]
     Indication: CONTUSION
     Dosage: 5/500 1/2 TABS
     Dates: start: 20040608, end: 20040806
  2. ETHANOL [Suspect]
     Indication: DRUG USE FOR UNKNOWN INDICATION
     Route: 048

REACTIONS (3)
  - BLOOD ALCOHOL INCREASED [None]
  - COMPLETED SUICIDE [None]
  - INTENTIONAL MISUSE [None]
